FAERS Safety Report 8444425-6 (Version None)
Quarter: 2012Q2

REPORT INFORMATION
  Report Type: 
  Country: None (occurrence: None)
  Receive Date: 20120618
  Receipt Date: 20120607
  Transmission Date: 20120825
  Serious: Yes (Hospitalization)
  Sender: FDA-Public Use
  Company Number: US-ASTRAZENECA-2011SE40936

PATIENT
  Age: 77 Year
  Sex: Female

DRUGS (3)
  1. BP MEDICATION [Concomitant]
  2. ALLERGY MEDICINE [Concomitant]
  3. CRESTOR [Suspect]
     Indication: BLOOD CHOLESTEROL INCREASED
     Route: 048

REACTIONS (6)
  - FOOD POISONING [None]
  - BONE PAIN [None]
  - THROAT IRRITATION [None]
  - MUSCLE SPASMS [None]
  - MALAISE [None]
  - GAIT DISTURBANCE [None]
